FAERS Safety Report 9270331 (Version 1)
Quarter: 2013Q2

REPORT INFORMATION
  Report Type: Spontaneous
  Country: IE (occurrence: IE)
  Receive Date: 20130503
  Receipt Date: 20130503
  Transmission Date: 20140414
  Serious: Yes (Death)
  Sender: FDA-Public Use
  Company Number: IE-ELI_LILLY_AND_COMPANY-IE201304007534

PATIENT
  Sex: Male

DRUGS (5)
  1. FORSTEO [Suspect]
     Indication: OSTEOPOROSIS
     Dosage: 20 UG, QD
     Route: 058
     Dates: start: 20121130
  2. SOLPADOL [Concomitant]
  3. TRAMADOL [Concomitant]
  4. ISOMEL [Concomitant]
  5. LYRICA [Concomitant]

REACTIONS (1)
  - Death [Fatal]
